FAERS Safety Report 8787365 (Version 1)
Quarter: 2012Q4

REPORT INFORMATION
  Report Type: Report from Study
  Country: US (occurrence: US)
  Receive Date: 20120914
  Receipt Date: 20120914
  Transmission Date: 20130627
  Serious: No
  Sender: FDA-Public Use
  Company Number: US-VERTEX PHARMACEUTICAL INC.-AE-2012-009572

PATIENT

DRUGS (9)
  1. INCIVEK [Suspect]
     Indication: HEPATITIS C
     Route: 048
     Dates: start: 20120430, end: 20120705
  2. PEGASYS [Concomitant]
     Indication: HEPATITIS C
     Route: 058
     Dates: start: 20120430
  3. RIBAPAK [Concomitant]
     Indication: HEPATITIS C
     Route: 048
     Dates: start: 20120430
  4. PROSCAR [Concomitant]
  5. ONDANSETRON HCL [Concomitant]
  6. OMEPRAZOLE DR [Concomitant]
  7. DIPHENYLDRAMINE [Concomitant]
  8. PEPTO- BISMOL [Concomitant]
  9. CELEXA [Concomitant]

REACTIONS (3)
  - Tongue ulceration [Unknown]
  - Rash [Recovered/Resolved]
  - Pruritus generalised [Unknown]
